FAERS Safety Report 15972717 (Version 5)
Quarter: 2019Q3

REPORT INFORMATION
  Report Type: Report from Study
  Country: UA (occurrence: UA)
  Receive Date: 20190216
  Receipt Date: 20190913
  Transmission Date: 20191004
  Serious: Yes (Hospitalization)
  Sender: FDA-Public Use
  Company Number: UA-ROCHE-2263759

PATIENT
  Age: 50 Year
  Sex: Female
  Weight: 97.7 kg

DRUGS (6)
  1. CETRINE [Concomitant]
     Active Substance: CETIRIZINE HYDROCHLORIDE
     Route: 048
     Dates: start: 20181203, end: 20181213
  2. SUPRASTIN [Concomitant]
     Active Substance: CHLOROPYRAMINE HYDROCHLORIDE
     Dosage: 1 AMPULE
     Route: 048
     Dates: start: 20181203, end: 20181213
  3. ATOXIL [Concomitant]
     Dosage: 1 OTHER
     Route: 048
     Dates: start: 20181203, end: 20181213
  4. SODIUM THIOSULPHATE [Concomitant]
     Active Substance: SODIUM THIOSULFATE
     Route: 042
     Dates: start: 20181203, end: 20181213
  5. EGILOK [Concomitant]
     Active Substance: METOPROLOL TARTRATE
     Route: 048
     Dates: start: 20180801
  6. ATEZOLIZUMAB. [Suspect]
     Active Substance: ATEZOLIZUMAB
     Indication: RENAL CELL CARCINOMA
     Dosage: DATE OF MOST RECENT DOSE OF BLINDED ATEZOLIZUMAB PRIOR TO AE ONSET ON 10/SEP/2018 AT 10:30, 1200 MG
     Route: 042
     Dates: start: 20171102

REACTIONS (1)
  - Psoriasis [Recovered/Resolved]

NARRATIVE: CASE EVENT DATE: 20181115
